FAERS Safety Report 5026478-0 (Version None)
Quarter: 2006Q2

REPORT INFORMATION
  Report Type: 
  Country: None (occurrence: None)
  Receive Date: 20060613
  Receipt Date: 20060613
  Transmission Date: 20061013
  Serious: Yes (Hospitalization)
  Sender: FDA-Public Use
  Company Number: None

PATIENT
  Age: 64 Year
  Sex: Female

DRUGS (3)
  1. OXALIPLATIN [Suspect]
     Indication: GASTRIC CANCER
     Dosage: 130 MG/M2, D1 OF @CYCLE AND IV
     Route: 042
     Dates: start: 20060428
  2. CAPECITABINE [Suspect]
     Indication: GASTRIC CANCER
     Dosage: 850 MG/M2 FOR 14 DAYS PO BID
     Route: 048
     Dates: start: 20060428, end: 20060519
  3. K-DUR 10 [Concomitant]

REACTIONS (6)
  - ABASIA [None]
  - ASTHENIA [None]
  - FATIGUE [None]
  - HYPOALBUMINAEMIA [None]
  - OEDEMA PERIPHERAL [None]
  - ORAL INTAKE REDUCED [None]
